FAERS Safety Report 5081623-6 (Version None)
Quarter: 2006Q3

REPORT INFORMATION
  Report Type: 
  Country: None (occurrence: None)
  Receive Date: 20060810
  Receipt Date: 20060731
  Transmission Date: 20061208
  Serious: Yes (Hospitalization)
  Sender: FDA-Public Use
  Company Number: JP200607003644

PATIENT
  Age: 54 Year
  Sex: Male

DRUGS (4)
  1. HUMACART REGULAR (HUMAN INSULIN (RDNA ORIGIN) REGULAR) PEN, DISPOSABLE [Suspect]
     Indication: DIABETES MELLITUS INSULIN-DEPENDENT
     Dosage: 28 U,
     Dates: end: 20060718
  2. HUMACART NPH (HUMAN INSULIN (RDNA ORIGIN) NPH) PEN, DISPOSABLE [Suspect]
     Indication: DIABETES MELLITUS INSULIN-DEPENDENT
     Dosage: 4 U, DAILY (1/D),
     Dates: start: 20060629, end: 20060717
  3. HUMULIN R PEN (HUMULIN R PEN) PEN, DISPOSABLE [Concomitant]
  4. HUMULIN N PEN (HUMULIN N PEN) PEN, DISPOSABLE [Concomitant]

REACTIONS (7)
  - ALANINE AMINOTRANSFERASE INCREASED [None]
  - ASPARTATE AMINOTRANSFERASE INCREASED [None]
  - BLOOD ALKALINE PHOSPHATASE INCREASED [None]
  - EOSINOPHIL COUNT INCREASED [None]
  - GAMMA-GLUTAMYLTRANSFERASE INCREASED [None]
  - LEUCINE AMINOPEPTIDASE INCREASED [None]
  - LIVER DISORDER [None]
